FAERS Safety Report 4684697-7 (Version None)
Quarter: 2005Q2

REPORT INFORMATION
  Report Type: 
  Country: None (occurrence: None)
  Receive Date: 20050603
  Receipt Date: 20050519
  Transmission Date: 20051028
  Serious: Yes (Hospitalization)
  Sender: FDA-Public Use
  Company Number: 2005-01833

PATIENT
  Age: 69 Year
  Sex: Female

DRUGS (2)
  1. FERRLECIT [Suspect]
     Indication: ANAEMIA
     Dosage: 31.25 MG, OVER 15 MIN, IV DRIP
     Route: 041
  2. EPOETIN ALFA (EPOETIN ALFA) [Concomitant]

REACTIONS (8)
  - CHEST PAIN [None]
  - DIZZINESS [None]
  - DYSPNOEA [None]
  - INFUSION RELATED REACTION [None]
  - LIP DISCOLOURATION [None]
  - PAIN IN EXTREMITY [None]
  - PALLOR [None]
  - SYNCOPE [None]
